FAERS Safety Report 7509022-5 (Version None)
Quarter: 2011Q2

REPORT INFORMATION
  Report Type: 
  Country: None (occurrence: None)
  Receive Date: 20110527
  Receipt Date: 20110518
  Transmission Date: 20111010
  Serious: Yes (Death, Other)
  Sender: FDA-Public Use
  Company Number: BE-ABBOTT-09P-013-0601916-00

PATIENT
  Sex: Female
  Weight: 84 kg

DRUGS (14)
  1. QVAR 40 [Concomitant]
     Indication: COUGH
     Route: 065
     Dates: start: 20050101
  2. ULTRA K [Concomitant]
     Indication: HYPOKALAEMIA
     Dosage: 1 SPOON
     Dates: start: 20000101
  3. PANADEINE CO [Concomitant]
     Indication: PRODUCT USED FOR UNKNOWN INDICATION
     Dates: start: 20081201
  4. PROZAC [Concomitant]
     Indication: DEPRESSION
     Dates: start: 20020101
  5. VENORUTON [Concomitant]
     Indication: VARICOSE VEIN
     Dates: start: 20080101
  6. FOLIC ACID [Concomitant]
     Indication: VITAMIN SUPPLEMENTATION
     Dates: start: 20000101
  7. MELOXICAM [Concomitant]
     Indication: PRODUCT USED FOR UNKNOWN INDICATION
     Dates: start: 20090417
  8. HUMIRA [Concomitant]
     Indication: CROHN'S DISEASE
     Route: 058
     Dates: start: 20060113
  9. HUMIRA [Suspect]
     Route: 058
     Dates: end: 20090910
  10. OMEPRAZOLE [Concomitant]
     Indication: GASTROOESOPHAGEAL REFLUX DISEASE
     Dates: start: 20060801
  11. HUMIRA [Suspect]
     Indication: CROHN'S DISEASE
     Route: 058
     Dates: start: 20080317, end: 20080317
  12. IMODIUM [Concomitant]
     Indication: DIARRHOEA
     Dates: start: 20070101
  13. HUMIRA [Suspect]
     Route: 058
  14. VITAMIN B-12 [Concomitant]
     Indication: VITAMIN SUPPLEMENTATION
     Dates: start: 20000101

REACTIONS (1)
  - OESOPHAGEAL ADENOCARCINOMA [None]
